FAERS Safety Report 14117058 (Version 2)
Quarter: 2017Q4

REPORT INFORMATION
  Report Type: Spontaneous
  Country: DE (occurrence: DE)
  Receive Date: 20171023
  Receipt Date: 20171105
  Transmission Date: 20180321
  Serious: Yes (Death, Hospitalization, Other)
  Sender: FDA-Public Use
  Company Number: DE-INTERCEPT-PMOCA2017001189

PATIENT

DRUGS (1)
  1. OCALIVA [Suspect]
     Active Substance: OBETICHOLIC ACID
     Dosage: 5 MG, QD
     Route: 065

REACTIONS (4)
  - Metastases to liver [Unknown]
  - Death [Fatal]
  - Blood bilirubin increased [Unknown]
  - Hepatic failure [Unknown]
